FAERS Safety Report 4479273-5 (Version None)
Quarter: 2004Q4

REPORT INFORMATION
  Report Type: 
  Country: None (occurrence: None)
  Receive Date: 20041015
  Receipt Date: 20041007
  Transmission Date: 20050328
  Serious: Yes (Life-Threatening, Hospitalization)
  Sender: FDA-Public Use
  Company Number: STA-AE-04-MTX-472

PATIENT
  Age: 63 Year
  Sex: Male

DRUGS (7)
  1. METHOTREXATE [Suspect]
     Indication: RHEUMATOID ARTHRITIS
     Dosage: 12.5 MG 1X PER 1 WK, ORAL
     Route: 048
     Dates: start: 20020805, end: 20040601
  2. HUMIRA [Suspect]
     Indication: RHEUMATOID ARTHRITIS
     Dosage: 40 MG 2X PER 1 WK, SC
     Route: 058
     Dates: start: 20040225, end: 20040601
  3. SIMVASTATIN [Concomitant]
  4. SELO-ZOK (METOPROLOL SUCCINATE) [Concomitant]
  5. ACETAMINOPHEN [Concomitant]
  6. MAGNECYL (ACETYLSALICYLIC ACID) [Concomitant]
  7. LEUCOVORIN CALCIUM [Concomitant]

REACTIONS (1)
  - DISSEMINATED TUBERCULOSIS [None]
